FAERS Safety Report 17620880 (Version 3)
Quarter: 2020Q3

REPORT INFORMATION
  Report Type: Report from Study
  Country: None (occurrence: US)
  Receive Date: 20200403
  Receipt Date: 20200825
  Transmission Date: 20201102
  Serious: Yes (Hospitalization)
  Sender: FDA-Public Use
  Company Number: US-ABBVIE-20P-163-3349324-00

PATIENT
  Age: 83 Year
  Sex: Female

DRUGS (10)
  1. ALPRAZOLAM. [Concomitant]
     Active Substance: ALPRAZOLAM
     Indication: PRODUCT USED FOR UNKNOWN INDICATION
  2. AMLODIPINE BESYLATE. [Concomitant]
     Active Substance: AMLODIPINE BESYLATE
     Indication: PRODUCT USED FOR UNKNOWN INDICATION
  3. IMBRUVICA [Suspect]
     Active Substance: IBRUTINIB
     Route: 048
  4. METOPROLOL TARTRATE. [Concomitant]
     Active Substance: METOPROLOL TARTRATE
     Indication: PRODUCT USED FOR UNKNOWN INDICATION
     Dosage: 100
     Dates: end: 20200330
  5. IMBRUVICA [Suspect]
     Active Substance: IBRUTINIB
     Route: 048
  6. ATORVASTATIN CALCIUM. [Concomitant]
     Active Substance: ATORVASTATIN CALCIUM
     Indication: PRODUCT USED FOR UNKNOWN INDICATION
  7. HYDRALAZINE HCL [Concomitant]
     Active Substance: HYDRALAZINE HYDROCHLORIDE
     Indication: PRODUCT USED FOR UNKNOWN INDICATION
  8. IMBRUVICA [Suspect]
     Active Substance: IBRUTINIB
     Indication: B-CELL LYMPHOMA
     Route: 048
     Dates: start: 201911, end: 20200320
  9. BUSPIRONE HCL [Concomitant]
     Active Substance: BUSPIRONE HYDROCHLORIDE
     Indication: PRODUCT USED FOR UNKNOWN INDICATION
  10. LISINOPRIL. [Concomitant]
     Active Substance: LISINOPRIL
     Indication: PRODUCT USED FOR UNKNOWN INDICATION

REACTIONS (15)
  - Hypotension [Recovering/Resolving]
  - Influenza like illness [Unknown]
  - Cough [Unknown]
  - Dehydration [Unknown]
  - Contusion [Recovered/Resolved]
  - Gastric disorder [Unknown]
  - Blood sodium decreased [Unknown]
  - Skin exfoliation [Unknown]
  - Blood potassium decreased [Unknown]
  - Dyspnoea [Unknown]
  - Headache [Unknown]
  - Pyrexia [Recovering/Resolving]
  - Renal disorder [Unknown]
  - Swelling [Unknown]
  - Pneumonia [Unknown]

NARRATIVE: CASE EVENT DATE: 202003
